FAERS Safety Report 21844544 (Version 1)
Quarter: 2023Q1

REPORT INFORMATION
  Report Type: Report from Study
  Country: US (occurrence: US)
  Receive Date: 20230110
  Receipt Date: 20230110
  Transmission Date: 20230418
  Serious: Yes (Other)
  Sender: FDA-Public Use
  Company Number: US-002147023-NVSC2022US302896

PATIENT
  Sex: Female

DRUGS (1)
  1. LAMPRENE [Suspect]
     Active Substance: CLOFAZIMINE
     Indication: Mycobacterium abscessus infection
     Dosage: 100 MG, QD (STRENGTH: 50 MG) (TWO 50 MG CAPSULES PO QDAY)
     Route: 048

REACTIONS (3)
  - Bronchiectasis [Unknown]
  - Asthma [Unknown]
  - Gastrooesophageal reflux disease [Unknown]
